FAERS Safety Report 9389073 (Version 2)
Quarter: 2013Q3

REPORT INFORMATION
  Report Type: Report from Study
  Country: AU (occurrence: AU)
  Receive Date: 20130708
  Receipt Date: 20130723
  Transmission Date: 20140515
  Serious: Yes (Hospitalization, Disabling, Other)
  Sender: FDA-Public Use
  Company Number: PHHY2013AU072135

PATIENT
  Age: 76 Year
  Sex: Female

DRUGS (27)
  1. ACLASTA [Suspect]
     Dosage: 5MG/100ML YEARLY
     Route: 042
  2. ACLASTA [Suspect]
     Dosage: 5MG/100ML YEARLY
     Route: 042
     Dates: start: 20090522
  3. ACLASTA [Suspect]
     Dosage: 5MG/100ML YEARLY
     Route: 042
     Dates: start: 20100519
  4. ACLASTA [Suspect]
     Dosage: 5MG/100ML YEARLY
     Route: 042
     Dates: start: 20110524
  5. ACLASTA [Suspect]
     Dosage: 5MG/100ML YEARLY
     Route: 042
     Dates: start: 20120614
  6. ENDEP [Concomitant]
     Dosage: 1 DF,BEFORE BED
  7. ENDONE [Concomitant]
     Dosage: 1 DF, PRN
  8. EZETIMIBE [Concomitant]
     Dosage: 1 DF, UNK
  9. FEFOL [Concomitant]
     Dosage: 1 DF, UNK
  10. FRUSEMIDE [Concomitant]
     Dosage: 1 DF IN THE EVENING
  11. HYDROXO B12 [Concomitant]
     Dosage: 1 DF, AS DIRECTED
  12. IMIGRAN                                 /NOR/ [Concomitant]
     Dosage: 1 DF, PRN
  13. IMOVANE [Concomitant]
     Dosage: 1 DF, IN EVENING
  14. INDERAL [Concomitant]
     Dosage: 0.5 DF, BID
  15. NEXIUM//ESOMEPRAZOLE SODIUM [Concomitant]
     Dosage: 1 DF, BID
  16. NORSPAN//NORFLOXACIN [Concomitant]
     Dosage: 1 DF, PER WEEK
  17. OXYCONTIN [Concomitant]
     Dosage: 1 DF, BID
  18. PILOCARPINE [Concomitant]
     Dosage: 7.5 ML, QID
  19. PLAQUENIL [Concomitant]
     Dosage: 1 DF, BID
  20. PREDNISONE [Concomitant]
     Dosage: 1 DF, PRN
  21. ROZEX [Concomitant]
     Dosage: UNK UKN, PRN
  22. SERETIDE MDI [Concomitant]
     Dosage: 2 DF, BID
  23. TRAMAL [Concomitant]
     Dosage: 1 DF, BID
  24. VENTOLIN                           /00942701/ [Concomitant]
     Dosage: 2 DF, PRN (EVERY 04 HOURS)
  25. WARFARIN [Concomitant]
     Dosage: 1 DF, IN THE EVENING
  26. ZANTAC [Concomitant]
     Dosage: 1 DF, IN EVENING
  27. CORTICOSTEROIDS [Concomitant]

REACTIONS (10)
  - Ligament sprain [Recovering/Resolving]
  - Pathological fracture [Recovering/Resolving]
  - Asthma [Unknown]
  - Rosacea [Unknown]
  - Bone density decreased [Unknown]
  - Hyperlipidaemia [Unknown]
  - Insomnia [Unknown]
  - Pain [Unknown]
  - Anaemia [Unknown]
  - Gastrooesophageal reflux disease [Unknown]
